FAERS Safety Report 22155819 (Version 1)
Quarter: 2023Q1

REPORT INFORMATION
  Report Type: Spontaneous
  Country: US (occurrence: US)
  Receive Date: 20230330
  Receipt Date: 20230330
  Transmission Date: 20230418
  Serious: No
  Sender: FDA-Public Use
  Company Number: US-JNJFOC-20230353440

PATIENT
  Age: 18 Year
  Sex: Female
  Weight: 40.860 kg

DRUGS (1)
  1. REMICADE [Suspect]
     Active Substance: INFLIXIMAB
     Indication: Crohn^s disease
     Route: 041

REACTIONS (9)
  - Drug level increased [Unknown]
  - Dermatitis psoriasiform [Unknown]
  - Vision blurred [Unknown]
  - Feeling abnormal [Unknown]
  - Weight decreased [Unknown]
  - Dizziness [Unknown]
  - Nausea [Unknown]
  - Fatigue [Unknown]
  - Off label use [Unknown]

NARRATIVE: CASE EVENT DATE: 20221001
